FAERS Safety Report 5302172-3 (Version None)
Quarter: 2007Q2

REPORT INFORMATION
  Report Type: 
  Country: None (occurrence: None)
  Receive Date: 20070419
  Receipt Date: 20070412
  Transmission Date: 20071010
  Serious: Yes (Other)
  Sender: FDA-Public Use
  Company Number: US-GENENTECH-239871

PATIENT
  Sex: Female

DRUGS (13)
  1. AVASTIN [Suspect]
     Indication: BREAST CANCER
     Dosage: 1100 MG, UNK
     Route: 042
     Dates: start: 20070126, end: 20070328
  2. ABRAXANE [Suspect]
     Indication: BREAST CANCER
     Dosage: 551 MG, UNK
     Route: 042
     Dates: start: 20070321, end: 20070328
  3. ADRIAMYCIN PFS [Suspect]
     Indication: RASH
     Dosage: 127 MG, 2/MONTH
     Route: 042
     Dates: start: 20070126
  4. CYTOXAN [Suspect]
     Indication: DRUG USE FOR UNKNOWN INDICATION
     Dosage: 1272 MG, 2/MONTH
     Route: 042
     Dates: start: 20070126
  5. NEULASTA [Suspect]
     Indication: DRUG USE FOR UNKNOWN INDICATION
     Dosage: 6 MG, UNK
     Route: 042
     Dates: start: 20070127
  6. PREVACID [Concomitant]
     Indication: GASTROOESOPHAGEAL REFLUX DISEASE
     Dosage: UNK, UNK
     Route: 048
     Dates: start: 20020101
  7. SIMVASTATIN [Concomitant]
     Indication: BLOOD CHOLESTEROL
     Dosage: UNK, UNK
     Route: 048
     Dates: start: 20040101
  8. LEXAPRO [Concomitant]
     Indication: DEPRESSION
     Dosage: UNK, UNK
     Route: 048
     Dates: start: 20060901
  9. PERIDEX MOUTHWASH [Concomitant]
     Indication: DRUG USE FOR UNKNOWN INDICATION
     Dates: start: 20070221
  10. TYLENOL W/ CODEINE [Concomitant]
     Indication: PAIN
     Dates: start: 20070101
  11. COMPAZINE [Concomitant]
     Indication: NAUSEA
     Dosage: 10 UNK, UNK
     Route: 048
     Dates: start: 20070126
  12. EMEND [Concomitant]
     Indication: NAUSEA
     Route: 048
     Dates: start: 20070126
  13. BENADRYL [Concomitant]
     Indication: FLUSHING
     Dates: start: 20070209

REACTIONS (1)
  - RASH MACULO-PAPULAR [None]
